FAERS Safety Report 7308778-4 (Version None)
Quarter: 2011Q1

REPORT INFORMATION
  Report Type: 
  Country: None (occurrence: None)
  Receive Date: 20110223
  Receipt Date: 20110215
  Transmission Date: 20110831
  Serious: Yes (Disabling)
  Sender: FDA-Public Use
  Company Number: US-B.I. PHARMACEUTICALS,INC./RIDGEFIELD-2011-BP-03247BP

PATIENT
  Age: 76 Year
  Sex: Female

DRUGS (8)
  1. ASCORBIC ACID [Concomitant]
     Indication: SUPPLEMENTATION THERAPY
  2. FISH OIL [Concomitant]
     Indication: SUPPLEMENTATION THERAPY
  3. FUROSEMIDE [Concomitant]
     Indication: FLUID RETENTION
  4. VITAMIN B COMPLEX [Concomitant]
     Indication: SUPPLEMENTATION THERAPY
  5. AMLODIPINE [Concomitant]
     Indication: HYPERTENSION
  6. PRADAXA [Suspect]
     Indication: ATRIAL FIBRILLATION
     Dosage: 300 MG
     Route: 048
     Dates: start: 20110101
  7. NEXIUM [Concomitant]
     Indication: GASTROOESOPHAGEAL REFLUX DISEASE
  8. COUMADIN [Concomitant]
     Indication: ATRIAL FIBRILLATION
     Dates: end: 20110101

REACTIONS (3)
  - DEAFNESS UNILATERAL [None]
  - EAR DISCOMFORT [None]
  - TINNITUS [None]
